FAERS Safety Report 15900362 (Version 1)
Quarter: 2019Q1

REPORT INFORMATION
  Report Type: Spontaneous
  Country: FR (occurrence: FR)
  Receive Date: 20190201
  Receipt Date: 20190201
  Transmission Date: 20190417
  Serious: Yes (Other)
  Sender: FDA-Public Use
  Company Number: FR-009507513-1901FRA010933

PATIENT
  Age: 55 Year
  Sex: Female

DRUGS (4)
  1. CYMEVAN IV [Suspect]
     Active Substance: GANCICLOVIR
     Indication: ANTIVIRAL PROPHYLAXIS
     Dosage: 800 MILLIGRAM, QD
     Route: 042
     Dates: start: 20190105
  2. NOXAFIL [Suspect]
     Active Substance: POSACONAZOLE
     Indication: PROPHYLAXIS
     Dosage: 300 MILLIGRAM
     Route: 042
     Dates: start: 20181227
  3. NEORAL [Suspect]
     Active Substance: CYCLOSPORINE
     Indication: BONE MARROW TRANSPLANT
     Dosage: 140 MILLIGRAM, QD
     Route: 048
     Dates: start: 20181121
  4. CYMEVAN IV [Suspect]
     Active Substance: GANCICLOVIR
     Indication: ANTIVIRAL PROPHYLAXIS
     Dosage: 600 MILLIGRAM, QD
     Route: 042
     Dates: start: 20181222, end: 20190104

REACTIONS (2)
  - Resting tremor [Not Recovered/Not Resolved]
  - Intention tremor [Not Recovered/Not Resolved]

NARRATIVE: CASE EVENT DATE: 20190106
